FAERS Safety Report 5035137-X (Version None)
Quarter: 2006Q2

REPORT INFORMATION
  Report Type: 
  Country: None (occurrence: None)
  Receive Date: 20060622
  Receipt Date: 20060613
  Transmission Date: 20061013
  Serious: Yes (Hospitalization, Other)
  Sender: FDA-Public Use
  Company Number: 2006-06-0021

PATIENT
  Age: 54 Year
  Sex: Male

DRUGS (6)
  1. PEG-INTERFERON ALFA-2B INJECTABLE [Suspect]
     Indication: HEPATITIS C
     Dosage: 120 MCG QWK SUBCUTANEOUS
     Route: 058
     Dates: start: 20050916, end: 20060225
  2. RIBAVIRIN [Suspect]
     Indication: HEPATITIS C
     Dosage: 1000 MG QD ORAL
     Route: 048
     Dates: start: 20050916, end: 20060225
  3. GLYBURIDE [Concomitant]
  4. AVANDIA [Concomitant]
  5. ASPIRIN [Concomitant]
  6. IBUPROFEN [Concomitant]

REACTIONS (5)
  - ANAEMIA [None]
  - HEPATIC FAILURE [None]
  - RENAL FAILURE [None]
  - SEPSIS [None]
  - URINARY TRACT INFECTION [None]
